FAERS Safety Report 8593459 (Version 2)
Quarter: 2013Q3

REPORT INFORMATION
  Report Type: Spontaneous
  Country: US (occurrence: US)
  Receive Date: 20120604
  Receipt Date: 20130704
  Transmission Date: 20140515
  Serious: Yes (Hospitalization, Disabling, Other)
  Sender: FDA-Public Use
  Company Number: US-ASTRAZENECA-2012SE35370

PATIENT
  Age: 612 Month
  Sex: Female

DRUGS (19)
  1. NEXIUM [Suspect]
     Indication: GASTROOESOPHAGEAL REFLUX DISEASE
     Dosage: ONCE DAILY
     Route: 048
     Dates: start: 2000
  2. PRILOSEC [Suspect]
     Indication: GASTROOESOPHAGEAL REFLUX DISEASE
     Dosage: ONCE DAILY
     Route: 048
  3. PROTONIX [Suspect]
     Indication: GASTROOESOPHAGEAL REFLUX DISEASE
     Dosage: ONCE DAILY
     Route: 065
  4. PREVACID [Suspect]
     Indication: GASTROOESOPHAGEAL REFLUX DISEASE
     Dosage: ONCE DAILY
     Route: 065
  5. ACIPHEX [Concomitant]
     Indication: GASTROOESOPHAGEAL REFLUX DISEASE
     Dosage: ONCE DAILY
  6. ZANTAC [Concomitant]
     Dates: start: 201304
  7. TUMS [Concomitant]
  8. ALKA-SELTZER [Concomitant]
  9. MILK OF MAGNESIA [Concomitant]
  10. LEXAPRO [Concomitant]
  11. RANITIDINE [Concomitant]
  12. VITAMIN D [Concomitant]
  13. IMITRAX [Concomitant]
  14. CALTRATE [Concomitant]
  15. ASPIRIN [Concomitant]
  16. VIOXX [Concomitant]
  17. PICYCLOMINE [Concomitant]
  18. CELEBREX [Concomitant]
  19. NORTRIPTYLINE HCL [Concomitant]

REACTIONS (15)
  - Cerebral haemorrhage [Unknown]
  - Cerebrovascular accident [Unknown]
  - Transient ischaemic attack [Unknown]
  - Osteoporosis [Unknown]
  - Foot fracture [Unknown]
  - Multiple fractures [Unknown]
  - Ankle fracture [Unknown]
  - Hand fracture [Unknown]
  - Arthritis [Unknown]
  - Calcium deficiency [Unknown]
  - Depression [Unknown]
  - Peripheral arterial occlusive disease [Unknown]
  - Vitamin D deficiency [Unknown]
  - Fibula fracture [Unknown]
  - Fall [Unknown]
